FAERS Safety Report 16913786 (Version 2)
Quarter: 2019Q4

REPORT INFORMATION
  Report Type: Report from Study
  Country: US (occurrence: US)
  Receive Date: 20191014
  Receipt Date: 20191111
  Transmission Date: 20200122
  Serious: Yes (Disabling)
  Sender: FDA-Public Use
  Company Number: US-BTG-201900210

PATIENT
  Age: 20 Year
  Sex: Male

DRUGS (5)
  1. CROFAB [Suspect]
     Active Substance: CROTALIDAE POLYVALENT IMMUNE FAB (OVINE)
     Indication: SNAKE BITE
     Dosage: 6 VIALS
     Route: 065
     Dates: start: 20190808, end: 20190808
  2. CROFAB [Suspect]
     Active Substance: CROTALIDAE POLYVALENT IMMUNE FAB (OVINE)
     Indication: SNAKE BITE
     Dosage: 2 VIALS
     Route: 065
     Dates: start: 20190808, end: 20190808
  3. CROFAB [Suspect]
     Active Substance: CROTALIDAE POLYVALENT IMMUNE FAB (OVINE)
     Indication: SNAKE BITE
     Dosage: 2 VIALS
     Route: 065
     Dates: start: 20190808, end: 20190808
  4. ANTIHISTAMINE [Concomitant]
     Active Substance: ANTIHISTAMINES NOS
     Indication: PROPHYLAXIS
     Dosage: UNKNOWN
     Route: 065
  5. CROFAB [Suspect]
     Active Substance: CROTALIDAE POLYVALENT IMMUNE FAB (OVINE)
     Indication: SNAKE BITE
     Dosage: 2 VIALS
     Route: 065
     Dates: start: 20190808, end: 20190808

REACTIONS (1)
  - Musculoskeletal stiffness [Not Recovered/Not Resolved]

NARRATIVE: CASE EVENT DATE: 20190809
